FAERS Safety Report 26098485 (Version 2)
Quarter: 2025Q4

REPORT INFORMATION
  Report Type: Spontaneous
  Country: CA (occurrence: CA)
  Receive Date: 20251127
  Receipt Date: 20251204
  Transmission Date: 20260118
  Serious: Yes (Other)
  Sender: PFIZER
  Company Number: CA-MLMSERVICE-20251112-PI709396-00072-1

PATIENT
  Age: 75 Year
  Sex: Female

DRUGS (3)
  1. BUPIVACAINE HYDROCHLORIDE [Suspect]
     Active Substance: BUPIVACAINE HYDROCHLORIDE
     Indication: Local anaesthesia
     Dosage: 0.25 %
     Route: 045
     Dates: start: 202406, end: 202406
  2. EPINEPHRINE [Suspect]
     Active Substance: EPINEPHRINE
     Indication: Local anaesthesia
     Dosage: 1:200,000
     Route: 045
     Dates: start: 202406, end: 202406
  3. LIDOCAINE [Concomitant]
     Active Substance: LIDOCAINE
     Indication: Local anaesthesia
     Dosage: 4 %
     Dates: start: 202406, end: 202406

REACTIONS (2)
  - IIIrd nerve paresis [Recovered/Resolved]
  - Trigeminal palsy [Recovered/Resolved]

NARRATIVE: CASE EVENT DATE: 20240601
